FAERS Safety Report 7503475-4 (Version None)
Quarter: 2011Q2

REPORT INFORMATION
  Report Type: 
  Country: None (occurrence: None)
  Receive Date: 20110525
  Receipt Date: 20110511
  Transmission Date: 20111010
  Serious: Yes (Other)
  Sender: FDA-Public Use
  Company Number: GB-PFIZER INC-2011111959

PATIENT
  Sex: Male

DRUGS (1)
  1. NICOTINE [Suspect]
     Dosage: UNK
     Route: 055
     Dates: start: 20110101

REACTIONS (3)
  - COUGH [None]
  - WHEEZING [None]
  - ASTHMA [None]
